FAERS Safety Report 5205941-3 (Version None)
Quarter: 2007Q1

REPORT INFORMATION
  Report Type: 
  Country: None (occurrence: None)
  Receive Date: 20070111
  Receipt Date: 20061229
  Transmission Date: 20070707
  Serious: Yes (Hospitalization)
  Sender: FDA-Public Use
  Company Number: JP-JPN-A200605034

PATIENT
  Age: 71 Year
  Sex: Female
  Weight: 46 kg

DRUGS (12)
  1. VALTREX [Suspect]
     Indication: HERPES ZOSTER
     Route: 048
     Dates: start: 20061121, end: 20061122
  2. TAGAMET [Suspect]
     Indication: GASTRITIS
     Dosage: 200MG PER DAY
     Route: 048
     Dates: end: 20061122
  3. ALPRENOLOL HYDROCHLORIDE [Concomitant]
     Indication: ARRHYTHMIA
     Dosage: 50MG PER DAY
     Route: 048
  4. BERIZYM [Concomitant]
     Indication: GASTRITIS
     Dosage: .8G PER DAY
     Route: 048
  5. ADETPHOS [Concomitant]
     Indication: TINNITUS
     Dosage: 2G PER DAY
     Route: 048
  6. STOMIN A [Concomitant]
     Indication: TINNITUS
     Route: 048
  7. ASPIRIN [Concomitant]
     Indication: ARRHYTHMIA
     Dosage: 100MG PER DAY
     Route: 048
  8. EVISTA [Concomitant]
     Indication: OSTEOPOROSIS
     Dosage: 60MG PER DAY
     Route: 048
  9. TANKARU [Concomitant]
     Indication: OSTEOPOROSIS
     Dosage: 3000MG PER DAY
     Route: 048
  10. DIGITOXIN TAB [Concomitant]
     Indication: ARRHYTHMIA
     Dosage: .0625MG PER DAY
     Route: 048
  11. LOXONIN [Concomitant]
     Indication: HERPES ZOSTER
     Route: 048
     Dates: start: 20061121
  12. MUCOSTA [Concomitant]
     Indication: GASTRITIS
     Route: 048
     Dates: start: 20061121

REACTIONS (3)
  - DYSPHORIA [None]
  - FEELING ABNORMAL [None]
  - HALLUCINATION, VISUAL [None]
